FAERS Safety Report 20210415 (Version 2)
Quarter: 2021Q4

REPORT INFORMATION
  Report Type: Spontaneous
  Country: HR (occurrence: HR)
  Receive Date: 20211221
  Receipt Date: 20211222
  Transmission Date: 20220303
  Serious: Yes (Other)
  Sender: FDA-Public Use
  Company Number: HR-BIOGEN-2021BI01079209

PATIENT
  Age: 38 Year
  Sex: Male

DRUGS (1)
  1. TYSABRI [Suspect]
     Active Substance: NATALIZUMAB
     Indication: Product used for unknown indication
     Route: 065

REACTIONS (3)
  - Alanine aminotransferase abnormal [Recovered/Resolved]
  - Aspartate aminotransferase abnormal [Recovered/Resolved]
  - Gamma-glutamyltransferase abnormal [Recovered/Resolved]
